FAERS Safety Report 10067258 (Version 1)
Quarter: 2014Q2

REPORT INFORMATION
  Report Type: Spontaneous
  Country: CA (occurrence: CA)
  Receive Date: 20140409
  Receipt Date: 20140409
  Transmission Date: 20141212
  Serious: Yes (Other)
  Sender: FDA-Public Use
  Company Number: CA-ROCHE-1375705

PATIENT
  Sex: Female

DRUGS (11)
  1. ACTEMRA [Suspect]
     Indication: PRODUCT USED FOR UNKNOWN INDICATION
     Route: 042
  2. ARAVA [Suspect]
     Indication: PRODUCT USED FOR UNKNOWN INDICATION
     Route: 065
  3. ACTONEL [Concomitant]
     Route: 065
  4. CITALOPRAM [Concomitant]
     Route: 065
  5. PLAQUENIL [Concomitant]
     Route: 065
  6. PREDNISONE [Concomitant]
     Route: 065
  7. RABEPRAZOLE [Concomitant]
     Route: 065
  8. SYNTHROID [Concomitant]
     Route: 065
  9. TYLENOL [Concomitant]
     Route: 065
  10. VITAMIN C [Concomitant]
     Route: 065
  11. EVENING PRIMROSE OIL [Concomitant]
     Route: 065

REACTIONS (3)
  - Haematochezia [Recovered/Resolved]
  - Lower respiratory tract infection [Recovered/Resolved]
  - Renal pain [Recovered/Resolved]
